FAERS Safety Report 22125212 (Version 2)
Quarter: 2023Q2

REPORT INFORMATION
  Report Type: Spontaneous
  Country: US (occurrence: US)
  Receive Date: 20230322
  Receipt Date: 20230616
  Transmission Date: 20230721
  Serious: No
  Sender: FDA-Public Use
  Company Number: US-KARYOPHARM-2023KPT000305

PATIENT

DRUGS (17)
  1. XPOVIO [Suspect]
     Active Substance: SELINEXOR
     Indication: Plasma cell myeloma
     Dosage: 60 MG, WEEKLY FOR 3 WEEKS AND 1 WEEK OFF, ORAL
     Route: 048
     Dates: end: 2023
  2. XPOVIO [Suspect]
     Active Substance: SELINEXOR
     Dosage: 80 MG, WEEKLY
     Route: 048
     Dates: start: 20230301
  3. ACYCLOVIR [Concomitant]
     Active Substance: ACYCLOVIR
  4. AMIODARONE HYDROCHLORIDE [Concomitant]
     Active Substance: AMIODARONE HYDROCHLORIDE
  5. ATORVASTATIN CALCIUM [Concomitant]
     Active Substance: ATORVASTATIN CALCIUM
  6. AMLODIPINE BESYLATE [Concomitant]
     Active Substance: AMLODIPINE BESYLATE
  7. CINVANTI [Concomitant]
     Active Substance: APREPITANT
  8. DEXAMETHASONE [Concomitant]
     Active Substance: DEXAMETHASONE
  9. FAMOTIDINE [Concomitant]
     Active Substance: FAMOTIDINE
  10. FINASTERIDE [Concomitant]
     Active Substance: FINASTERIDE
  11. ONDANSETRON HYDROCHLORIDE [Concomitant]
     Active Substance: ONDANSETRON HYDROCHLORIDE
  12. TAMSULOSIN HYDROCHLORIDE [Concomitant]
     Active Substance: TAMSULOSIN HYDROCHLORIDE
  13. TORSEMIDE [Concomitant]
     Active Substance: TORSEMIDE
  14. XGEVA [Concomitant]
     Active Substance: DENOSUMAB
  15. POMALYST [Concomitant]
     Active Substance: POMALIDOMIDE
  16. OLANZAPINE [Concomitant]
     Active Substance: OLANZAPINE
  17. VARUBI [ROLAPITANT HYDROCHLORIDE MONOHYDRATE] [Concomitant]

REACTIONS (2)
  - Rhinorrhoea [Unknown]
  - Fatigue [Unknown]

NARRATIVE: CASE EVENT DATE: 20230101
